FAERS Safety Report 20868984 (Version 1)
Quarter: 2022Q2

REPORT INFORMATION
  Report Type: Spontaneous
  Country: US (occurrence: None)
  Receive Date: 20220524
  Receipt Date: 20220524
  Transmission Date: 20220720
  Serious: No
  Sender: FDA-Public Use
  Company Number: None

PATIENT

DRUGS (1)
  1. PAXLOVID [Suspect]
     Active Substance: NIRMATRELVIR\RITONAVIR
     Indication: COVID-19
     Dosage: FREQUENCY : AS DIRECTED; RITONAVIR 100MG, NIRMATRELVIR 300MG?
     Route: 048
     Dates: start: 202206, end: 2022

REACTIONS (2)
  - Dysgeusia [None]
  - Abdominal discomfort [None]

NARRATIVE: CASE EVENT DATE: 20220506
